FAERS Safety Report 9328265 (Version 3)
Quarter: 2013Q3

REPORT INFORMATION
  Report Type: Spontaneous
  Country: US (occurrence: US)
  Receive Date: 20130604
  Receipt Date: 20130711
  Transmission Date: 20140515
  Serious: No
  Sender: FDA-Public Use
  Company Number: US-PFIZER INC-2013164355

PATIENT
  Age: 45 Year
  Sex: Male
  Weight: 118 kg

DRUGS (3)
  1. DEPO-TESTOSTERONE [Suspect]
     Indication: HORMONE REPLACEMENT THERAPY
     Dosage: 0.5 ML, WEEKLY (EVERY 7 DAYS)
     Route: 030
  2. DEPO-TESTOSTERONE [Suspect]
     Indication: TESTIS CANCER
  3. DEPO-TESTOSTERONE [Suspect]
     Indication: BLOOD TESTOSTERONE DECREASED

REACTIONS (2)
  - Product quality issue [Unknown]
  - Injection site pain [Unknown]
